FAERS Safety Report 5228208-6 (Version None)
Quarter: 2007Q1

REPORT INFORMATION
  Report Type: 
  Country: None (occurrence: None)
  Receive Date: 20070205
  Receipt Date: 20070126
  Transmission Date: 20070707
  Serious: Yes (Death)
  Sender: FDA-Public Use
  Company Number: CA-JNJFOC-20070106983

PATIENT
  Age: 91 Year
  Sex: Male

DRUGS (4)
  1. DURAGESIC-100 [Suspect]
     Indication: FRACTURE
     Route: 062
  2. DURAGESIC-100 [Suspect]
     Indication: OSTEOPOROSIS
     Route: 062
  3. DURAGESIC-100 [Suspect]
     Indication: PAIN
     Route: 062
  4. DILAUDID [Concomitant]
     Indication: PAIN
     Route: 065

REACTIONS (3)
  - CLOSTRIDIAL INFECTION [None]
  - MEGACOLON [None]
  - PNEUMONIA ASPIRATION [None]
